FAERS Safety Report 10864443 (Version 4)
Quarter: 2016Q2

REPORT INFORMATION
  Report Type: Report from Study
  Country: AR (occurrence: AR)
  Receive Date: 20150224
  Receipt Date: 20160406
  Transmission Date: 20160815
  Serious: Yes (Other)
  Sender: FDA-Public Use
  Company Number: AR-BRISTOL-MYERS SQUIBB COMPANY-BMS-2015-008869

PATIENT
  Age: 71 Year
  Sex: Female

DRUGS (1)
  1. ABATACEPT [Suspect]
     Active Substance: ABATACEPT
     Indication: RHEUMATOID ARTHRITIS
     Dosage: UNK UNK, Q4WK
     Route: 042
     Dates: start: 20130513

REACTIONS (4)
  - Pulmonary fibrosis [Recovering/Resolving]
  - Surgery [Recovering/Resolving]
  - Uterine prolapse [Recovering/Resolving]
  - Pneumonitis [Recovered/Resolved]

NARRATIVE: CASE EVENT DATE: 20150418
